FAERS Safety Report 9792100 (Version 7)
Quarter: 2014Q2

REPORT INFORMATION
  Report Type: Report from Study
  Country: CA (occurrence: CA)
  Receive Date: 20140102
  Receipt Date: 20140529
  Transmission Date: 20141212
  Serious: Yes (Death, Hospitalization, Other)
  Sender: FDA-Public Use
  Company Number: CA-ALEXION PHARMACEUTICALS INC.-A201304559

PATIENT
  Sex: 0

DRUGS (26)
  1. SOLIRIS [Suspect]
     Indication: PAROXYSMAL NOCTURNAL HAEMOGLOBINURIA
     Dosage: 600 MG, QW
     Route: 042
     Dates: start: 20111116, end: 20111207
  2. SOLIRIS [Suspect]
     Dosage: 900 MG, Q2W
     Route: 042
     Dates: start: 20111214
  3. SOLIRIS [Suspect]
     Dosage: 900 MG, Q2W
     Route: 042
     Dates: start: 20111214, end: 20140402
  4. SYNTHROID [Concomitant]
     Indication: THYROID DISORDER
     Dosage: 0.05 MG, QD
     Route: 048
  5. PANTOPRAZOLE [Concomitant]
     Indication: PRODUCT USED FOR UNKNOWN INDICATION
     Dosage: 40 MG, QD
     Route: 048
     Dates: start: 20111020
  6. PREDNISONE [Concomitant]
     Indication: PRODUCT USED FOR UNKNOWN INDICATION
     Dosage: 40 MG, QD
     Route: 048
     Dates: start: 20111020
  7. EURO-FER [Concomitant]
     Indication: SUPPLEMENTATION THERAPY
     Dosage: 1 DF, QD
     Route: 048
     Dates: start: 20111020
  8. VITAMIN B12 [Concomitant]
     Indication: VITAMIN B12 DEFICIENCY
     Dosage: 1000 ?G, QMONTH
     Route: 030
     Dates: start: 20110201
  9. CALCITE D [Concomitant]
     Indication: SUPPLEMENTATION THERAPY
     Dosage: 500 MG-400UI, BID
     Route: 048
     Dates: start: 20110223
  10. D-GEL [Concomitant]
     Indication: PRODUCT USED FOR UNKNOWN INDICATION
     Dosage: 1000 IU, QD
     Route: 065
  11. ALTACE-HCT [Concomitant]
     Indication: PRODUCT USED FOR UNKNOWN INDICATION
     Dosage: 2.5-12.5 MG, QD
     Route: 048
  12. APO-FOLIC [Concomitant]
     Indication: SUPPLEMENTATION THERAPY
     Dosage: 5 MG, QD
     Route: 048
     Dates: start: 20111020
  13. BENEFIBER [Concomitant]
     Indication: PRODUCT USED FOR UNKNOWN INDICATION
     Dosage: 2 TSP, QD
     Route: 048
  14. CONSOPT2 0.5% [Concomitant]
     Indication: PRODUCT USED FOR UNKNOWN INDICATION
     Dosage: 1 GTT, BID
     Route: 047
  15. GLYCERIN [Concomitant]
     Indication: CONSTIPATION
     Dosage: 1 DF, PRN
     Route: 054
     Dates: start: 20120822
  16. TYLENOL [Concomitant]
     Indication: SCIATICA
     Dosage: 650 MG, PRN
     Route: 048
     Dates: start: 20130817
  17. TYLENOL [Concomitant]
     Dosage: UNK
  18. GAVISCON [Concomitant]
     Indication: PROPHYLAXIS
     Dosage: UNK, PRN
     Route: 048
     Dates: start: 20130417
  19. OXAZEPAM [Concomitant]
     Indication: INSOMNIA
     Dosage: 10 MG, QD HS
     Route: 065
     Dates: start: 20131101
  20. ROBAX [Concomitant]
     Indication: BACK PAIN
     Dosage: UNK, PRN
     Route: 048
     Dates: start: 20131104
  21. SENOKOT [Concomitant]
     Indication: CONSTIPATION
     Dosage: UNK, 1-2 QD
     Route: 048
     Dates: start: 20131124
  22. CODEINE [Concomitant]
     Indication: PAIN
     Dosage: 2.5 MG, Q4 HRS PRN
     Route: 065
     Dates: start: 20131126, end: 20131127
  23. COLACE [Concomitant]
     Indication: CONSTIPATION
     Dosage: 100 MG, QD
     Route: 048
     Dates: start: 20131124
  24. CITALOPRAM [Concomitant]
     Indication: PRODUCT USED FOR UNKNOWN INDICATION
     Dosage: 10 MG, QD
     Route: 048
     Dates: start: 201401
  25. IRON [Concomitant]
     Indication: PRODUCT USED FOR UNKNOWN INDICATION
     Route: 065
  26. SENNA                              /00142201/ [Concomitant]
     Indication: CONSTIPATION
     Dosage: 2 CO BID
     Route: 048
     Dates: start: 201401

REACTIONS (17)
  - Death [Fatal]
  - Unevaluable event [Unknown]
  - Renal failure [Unknown]
  - Diverticulitis [Recovered/Resolved]
  - Delirium [Recovered/Resolved]
  - Depression [Not Recovered/Not Resolved]
  - Haemoglobin decreased [Recovered/Resolved]
  - Anaemia [Recovered/Resolved]
  - Weight decreased [Not Recovered/Not Resolved]
  - Malaise [Not Recovered/Not Resolved]
  - Eating disorder [Unknown]
  - Dysphagia [Not Recovered/Not Resolved]
  - Haemoglobinuria [Not Recovered/Not Resolved]
  - Abnormal faeces [Not Recovered/Not Resolved]
  - Decreased appetite [Not Recovered/Not Resolved]
  - Diarrhoea [Not Recovered/Not Resolved]
  - Fatigue [Not Recovered/Not Resolved]
